FAERS Safety Report 9577873 (Version 1)
Quarter: 2013Q4

REPORT INFORMATION
  Report Type: Spontaneous
  Country: US (occurrence: US)
  Receive Date: 20131001
  Receipt Date: 20131001
  Transmission Date: 20140711
  Serious: No
  Sender: FDA-Public Use
  Company Number: US-AMGEN-USASP2013010146

PATIENT
  Age: 50 Year
  Sex: Female
  Weight: 76.19 kg

DRUGS (8)
  1. ENBREL [Suspect]
     Indication: PRODUCT USED FOR UNKNOWN INDICATION
     Dosage: 50 MG, 2 TIMES/WK 2 TO 3 DAYS APART FOR THREE MONTHS
     Route: 058
  2. PROZAC [Concomitant]
     Dosage: 10 MG, UNK
  3. PREMARIN [Concomitant]
     Dosage: 0.3 MG, UNK
  4. FLEXERIL                           /00428402/ [Concomitant]
     Dosage: 10 MG, UNK
  5. TRAMADOL HCL [Concomitant]
     Dosage: 200 MG ER, UNK
  6. ADDERALL [Concomitant]
     Dosage: 15 MG, UNK
  7. NEXIUM                             /01479302/ [Concomitant]
     Dosage: 20 MG DR, UNK
  8. SUDAFED OM [Concomitant]
     Dosage: 0.05 %, UNK

REACTIONS (3)
  - Injection site pruritus [Unknown]
  - Injection site pain [Unknown]
  - Injection site erythema [Unknown]
